FAERS Safety Report 16134693 (Version 2)
Quarter: 2019Q2

REPORT INFORMATION
  Report Type: Spontaneous
  Country: IT (occurrence: IT)
  Receive Date: 20190329
  Receipt Date: 20190415
  Transmission Date: 20190711
  Serious: Yes (Death, Other)
  Sender: FDA-Public Use
  Company Number: IT-ELI_LILLY_AND_COMPANY-IT201903010865

PATIENT
  Age: 72 Year
  Sex: Male

DRUGS (4)
  1. CARBOPLATINUM [Suspect]
     Active Substance: CARBOPLATIN
     Indication: MESOTHELIOMA
  2. PEMETREXED. [Suspect]
     Active Substance: PEMETREXED
     Indication: LUNG NEOPLASM MALIGNANT
     Dosage: UNK UNK, CYCLICAL
     Route: 065
     Dates: end: 201611
  3. CARBOPLATINUM [Suspect]
     Active Substance: CARBOPLATIN
     Indication: LUNG NEOPLASM MALIGNANT
     Dosage: UNK UNK, CYCLICAL
     Route: 065
     Dates: end: 201611
  4. PEMETREXED. [Suspect]
     Active Substance: PEMETREXED
     Indication: MESOTHELIOMA

REACTIONS (6)
  - Oedema peripheral [Unknown]
  - Cardiac failure [Unknown]
  - Respiratory failure [Unknown]
  - Blood creatinine increased [Unknown]
  - Pneumonitis [Fatal]
  - Atrial fibrillation [Unknown]

NARRATIVE: CASE EVENT DATE: 201704
